FAERS Safety Report 6382501-2 (Version None)
Quarter: 2009Q3

REPORT INFORMATION
  Report Type: 
  Country: None (occurrence: None)
  Receive Date: 20090930
  Receipt Date: 20090929
  Transmission Date: 20100115
  Serious: Yes (Hospitalization)
  Sender: FDA-Public Use
  Company Number: A0809037A

PATIENT
  Age: 67 Year
  Sex: Female

DRUGS (2)
  1. ALLI [Suspect]
     Route: 048
     Dates: end: 20090331
  2. NONE [Concomitant]

REACTIONS (2)
  - COLECTOMY [None]
  - COLON CANCER [None]
